FAERS Safety Report 5608130-3 (Version None)
Quarter: 2008Q1

REPORT INFORMATION
  Report Type: 
  Country: None (occurrence: None)
  Receive Date: 20080130
  Receipt Date: 20071221
  Transmission Date: 20080703
  Serious: Yes (Hospitalization)
  Sender: FDA-Public Use
  Company Number: PHBS2007JP20925

PATIENT
  Age: 32 Year
  Sex: Female

DRUGS (19)
  1. TEGRETOL [Suspect]
     Indication: PAIN
     Dosage: 300 MG/DAY
     Route: 048
  2. TEGRETOL [Suspect]
     Dosage: 200 MG/DAY
     Route: 048
  3. TEGRETOL [Suspect]
     Dosage: 400 MG/DAY
     Route: 048
  4. TEGRETOL [Suspect]
     Dosage: 300 MG/DAY
     Route: 048
  5. TOFRANIL [Suspect]
     Dosage: 45 MG/DAY
     Route: 048
  6. TOFRANIL [Suspect]
     Dosage: 75 MG/DAY
     Route: 048
  7. MEXILETINE HYDROCHLORIDE [Concomitant]
     Dosage: 300 MG/DAY
  8. MEXILETINE HYDROCHLORIDE [Concomitant]
     Dosage: 200 MG/DAY
  9. MEXILETINE HYDROCHLORIDE [Concomitant]
     Dosage: 300 MG/DAY
  10. AMITRIPTYLINE HYDROCHLORIDE [Concomitant]
     Dosage: 25 MG/DAY
  11. ACETAMINOPHEN [Concomitant]
     Dosage: 1 G/DAY
  12. TOKISYAKUYAKUSAN [Concomitant]
     Dosage: 7.5 G/DAY
     Route: 048
  13. HACHIMIJIO-GAN [Concomitant]
     Dosage: 7.5 G/DAY
     Route: 048
  14. SULPIRIDE [Concomitant]
     Dosage: 150 MG/DAY
  15. SHAKUYAKUKANZOUBUSHITOU [Concomitant]
     Dosage: 2.5 G/DAY
  16. DEXTROMETHORPHAN HYDROBROMIDE [Concomitant]
     Dosage: 45 MG/DAY
  17. THIAMYRAL [Concomitant]
     Route: 065
  18. KETAMINE HCL [Concomitant]
     Route: 065
  19. LIDOCAINE [Concomitant]
     Route: 065

REACTIONS (5)
  - ABDOMINAL PAIN UPPER [None]
  - CONVERSION DISORDER [None]
  - DIZZINESS [None]
  - GASTRITIS [None]
  - NAUSEA [None]
